FAERS Safety Report 10089017 (Version 1)
Quarter: 2014Q2

REPORT INFORMATION
  Report Type: Spontaneous
  Country: US (occurrence: None)
  Receive Date: 20140418
  Receipt Date: 20140418
  Transmission Date: 20141212
  Serious: Yes (Disabling)
  Sender: FDA-Public Use
  Company Number: None

PATIENT
  Age: 80 Year
  Sex: Female

DRUGS (7)
  1. XARELTO [Suspect]
     Indication: COAGULOPATHY
     Dosage: 1PILL ABED TIME DAILY.
     Dates: start: 20131003
  2. ELIQUIS (APIXABAN) [Suspect]
     Indication: COAGULOPATHY
     Dosage: 2 PILLS 2 TAB MOUTH-2 TIMES-12 HRS.
     Route: 048
  3. WARFARIN [Concomitant]
  4. TOPROL [Concomitant]
  5. LUMIGAN [Concomitant]
  6. XANAX [Concomitant]
  7. TYLENOL [Concomitant]

REACTIONS (4)
  - Pain in extremity [None]
  - Pain in extremity [None]
  - Paraesthesia [None]
  - Hypoaesthesia [None]
